FAERS Safety Report 5569821-6 (Version None)
Quarter: 2007Q4

REPORT INFORMATION
  Report Type: 
  Country: None (occurrence: None)
  Receive Date: 20071220
  Receipt Date: 20070215
  Transmission Date: 20080405
  Serious: No
  Sender: FDA-Public Use
  Company Number: US-ABBOTT-07P-163-0359665-00

PATIENT
  Age: 40 Year
  Sex: Female

DRUGS (1)
  1. OMNICEF [Suspect]
     Indication: UPPER RESPIRATORY TRACT INFECTION
     Route: 048
     Dates: start: 20070201, end: 20070201

REACTIONS (2)
  - CONFUSIONAL STATE [None]
  - DIZZINESS [None]
